FAERS Safety Report 4718970-0 (Version None)
Quarter: 2005Q3

REPORT INFORMATION
  Report Type: 
  Country: None (occurrence: None)
  Receive Date: 20050719
  Receipt Date: 20050706
  Transmission Date: 20060218
  Serious: Yes (Life-Threatening, Hospitalization)
  Sender: FDA-Public Use
  Company Number: EWC050744883

PATIENT
  Age: 63 Year
  Sex: Female

DRUGS (6)
  1. OLANZAPINE [Suspect]
     Indication: MAJOR DEPRESSION
     Dosage: 20 MG/1 DAY
  2. ACCUPRIL [Concomitant]
  3. ATENOLOL [Concomitant]
  4. FUROSEMIDE (FUROSEMIDE) [Concomitant]
  5. LITHII CARBONAS [Concomitant]
  6. NORTRIPTYLINE HCL [Concomitant]

REACTIONS (5)
  - CARDIOMYOPATHY [None]
  - EJECTION FRACTION DECREASED [None]
  - MITRAL VALVE DISEASE [None]
  - TRICUSPID VALVE DISEASE [None]
  - VENTRICULAR DYSFUNCTION [None]
